FAERS Safety Report 6583652-X (Version None)
Quarter: 2010Q1

REPORT INFORMATION
  Report Type: 
  Country: None (occurrence: None)
  Receive Date: 20100213
  Receipt Date: 20100213
  Transmission Date: 20100710
  Serious: No
  Sender: FDA-Public Use
  Company Number: None

PATIENT
  Sex: Male
  Weight: 90.7194 kg

DRUGS (1)
  1. AVELOX [Suspect]
     Indication: SINUSITIS
     Dosage: 400MG FOR 14 DAYS, 1/DAY PO
     Route: 048
     Dates: start: 20100204, end: 20100206

REACTIONS (13)
  - ABDOMINAL DISCOMFORT [None]
  - ACTIVITIES OF DAILY LIVING IMPAIRED [None]
  - ANXIETY [None]
  - ARTHRALGIA [None]
  - BOWEL MOVEMENT IRREGULARITY [None]
  - CHEST DISCOMFORT [None]
  - DEPRESSION [None]
  - DISTURBANCE IN ATTENTION [None]
  - DRUG EFFECT DECREASED [None]
  - DYSPEPSIA [None]
  - FEELING OF DESPAIR [None]
  - FORMICATION [None]
  - HEADACHE [None]
